FAERS Safety Report 9624178 (Version 1)
Quarter: 2013Q4

REPORT INFORMATION
  Report Type: Spontaneous
  Country: US (occurrence: US)
  Receive Date: 20131015
  Receipt Date: 20131015
  Transmission Date: 20140711
  Serious: Yes (Hospitalization)
  Sender: FDA-Public Use
  Company Number: US-B.I. PHARMACEUTICALS,INC./RIDGEFIELD-2013-BI-32018BP

PATIENT
  Age: 36 Year
  Sex: Female
  Weight: 73 kg

DRUGS (5)
  1. COMBIVENT [Suspect]
     Indication: ASTHMA
     Route: 055
     Dates: start: 201203, end: 201306
  2. FLEXERIL [Concomitant]
     Indication: MUSCLE SPASMS
     Route: 048
     Dates: start: 2010
  3. LYRICA [Concomitant]
     Indication: PAIN
     Dosage: 600 MG
     Route: 048
     Dates: start: 2010
  4. XANAX [Concomitant]
     Indication: INSOMNIA
     Dosage: 1 MG
     Route: 048
     Dates: start: 2010
  5. HYDROMORPHONE [Concomitant]
     Indication: PAIN
     Dosage: 16 MG
     Route: 048
     Dates: start: 2010

REACTIONS (5)
  - Pneumonia [Recovered/Resolved]
  - Pneumonia [Recovered/Resolved]
  - Urosepsis [Recovered/Resolved]
  - Urosepsis [Recovered/Resolved]
  - Off label use [Recovered/Resolved]
